FAERS Safety Report 7099540-9 (Version None)
Quarter: 2010Q4

REPORT INFORMATION
  Report Type: 
  Country: None (occurrence: None)
  Receive Date: 20101105
  Receipt Date: 20101025
  Transmission Date: 20110411
  Serious: Yes (Other)
  Sender: FDA-Public Use
  Company Number: 2010P1002210

PATIENT
  Age: 53 Year
  Sex: Male

DRUGS (3)
  1. ALLOPURINOL [Suspect]
     Indication: IRRITABLE BOWEL SYNDROME
     Dosage: 100 MG; PO
     Route: 048
  2. AZATHIOPRINE (NO PREF. NAME) [Suspect]
     Indication: IRRITABLE BOWEL SYNDROME
     Dosage: (300 MG; PO) (50 MG; PO)
     Route: 048
  3. PREDNISONE [Concomitant]

REACTIONS (4)
  - HERPES ZOSTER [None]
  - LYMPHOCYTE COUNT DECREASED [None]
  - NEUTROPHIL COUNT DECREASED [None]
  - WHITE BLOOD CELL COUNT DECREASED [None]
